FAERS Safety Report 18636454 (Version 1)
Quarter: 2020Q4

REPORT INFORMATION
  Report Type: Report from Study
  Country: US (occurrence: US)
  Receive Date: 20201218
  Receipt Date: 20201218
  Transmission Date: 20210114
  Serious: Yes (Life-Threatening, Hospitalization, Other)
  Sender: FDA-Public Use
  Company Number: NVSC2020US335919

PATIENT
  Sex: Female

DRUGS (1)
  1. ILARIS [Suspect]
     Active Substance: CANAKINUMAB
     Indication: STILL^S DISEASE
     Dosage: UNK
     Route: 065

REACTIONS (14)
  - Ear infection [Unknown]
  - Mass [Unknown]
  - Rash pruritic [Unknown]
  - H1N1 influenza [Unknown]
  - Cardiac disorder [Unknown]
  - Sinusitis [Unknown]
  - Infection [Unknown]
  - Arthralgia [Unknown]
  - Cough [Unknown]
  - Migraine [Unknown]
  - Illness [Unknown]
  - Thrombosis [Unknown]
  - Inflammation [Unknown]
  - Deafness [Unknown]
